FAERS Safety Report 7568616-1 (Version None)
Quarter: 2011Q2

REPORT INFORMATION
  Report Type: 
  Country: None (occurrence: None)
  Receive Date: 20110623
  Receipt Date: 20110615
  Transmission Date: 20111010
  Serious: Yes (Hospitalization, Other)
  Sender: FDA-Public Use
  Company Number: PHHY2011ES43925

PATIENT
  Age: 61 Year
  Sex: Female

DRUGS (4)
  1. PROPOFOL [Concomitant]
  2. PHENYTOIN [Concomitant]
     Dosage: 100 MG, Q8H
  3. MIDAZOLAM HCL [Concomitant]
  4. DICLOFENAC SODIUM [Suspect]
     Route: 030

REACTIONS (7)
  - CARDIAC ARREST [None]
  - CLONUS [None]
  - MYDRIASIS [None]
  - METABOLIC ACIDOSIS [None]
  - BRADYCARDIA [None]
  - ANAPHYLACTIC REACTION [None]
  - LOSS OF CONSCIOUSNESS [None]
